APPROVED DRUG PRODUCT: ADEMPAS
Active Ingredient: RIOCIGUAT
Strength: 2MG
Dosage Form/Route: TABLET;ORAL
Application: N204819 | Product #004 | TE Code: AB
Applicant: BAYER HEALTHCARE PHARMACEUTICALS INC
Approved: Oct 8, 2013 | RLD: Yes | RS: No | Type: RX

PATENTS:
Patent 12503469 | Expires: Feb 18, 2034
Patent 12503469 | Expires: Feb 18, 2034
Patent 10662188 | Expires: Feb 18, 2034
Patent 10662188 | Expires: Feb 18, 2034
Patent 11203593 | Expires: Feb 18, 2034
Patent 11203593 | Expires: Feb 18, 2034
Patent 7173037 | Expires: Dec 4, 2026